FAERS Safety Report 10990903 (Version 2)
Quarter: 2015Q2

REPORT INFORMATION
  Report Type: Report from Study
  Country: US (occurrence: US)
  Receive Date: 20150406
  Receipt Date: 20150423
  Transmission Date: 20150821
  Serious: Yes (Hospitalization)
  Sender: FDA-Public Use
  Company Number: US-ACTELION-A-US2015-115588

PATIENT
  Age: 65 Year
  Sex: Female

DRUGS (3)
  1. MACITENTAN [Suspect]
     Active Substance: MACITENTAN
     Indication: PULMONARY ARTERIAL HYPERTENSION
     Dosage: 10 MG, QD
     Route: 048
     Dates: start: 20141230, end: 20150205
  2. ASPIRIN. [Concomitant]
     Active Substance: ASPIRIN
  3. WARFARIN [Concomitant]
     Active Substance: WARFARIN

REACTIONS (1)
  - Ventricular assist device insertion [Unknown]
